FAERS Safety Report 17497006 (Version 1)
Quarter: 2020Q1

REPORT INFORMATION
  Report Type: Spontaneous
  Country: GR (occurrence: GR)
  Receive Date: 20200304
  Receipt Date: 20200304
  Transmission Date: 20200409
  Serious: Yes (Other)
  Sender: FDA-Public Use
  Company Number: GR-MYLANLABS-2020M1022395

PATIENT
  Age: 73 Year
  Sex: Female

DRUGS (2)
  1. PREDNISONE. [Suspect]
     Active Substance: PREDNISONE
     Indication: FOLLICULAR DENDRITIC CELL SARCOMA
     Dosage: UNK
     Route: 042
  2. GEMCITABINE. [Suspect]
     Active Substance: GEMCITABINE
     Indication: FOLLICULAR DENDRITIC CELL SARCOMA
     Dosage: UNK
     Route: 042

REACTIONS (2)
  - Corneal perforation [Unknown]
  - Paraneoplastic pemphigus [Unknown]
